FAERS Safety Report 5109026-6 (Version None)
Quarter: 2006Q3

REPORT INFORMATION
  Report Type: 
  Country: None (occurrence: None)
  Receive Date: 20060731
  Receipt Date: 20060502
  Transmission Date: 20061208
  Serious: No
  Sender: FDA-Public Use
  Company Number: 2006PV013143

PATIENT
  Age: 54 Year
  Sex: Female
  Weight: 63.2768 kg

DRUGS (4)
  1. BYETTA [Suspect]
     Indication: DIABETES MELLITUS NON-INSULIN-DEPENDENT
     Dosage: 10 MCG : 5 MCG : BID;SC
     Route: 058
     Dates: start: 20060101, end: 20060201
  2. BYETTA [Suspect]
     Indication: DIABETES MELLITUS NON-INSULIN-DEPENDENT
     Dosage: 10 MCG : 5 MCG : BID;SC
     Route: 058
     Dates: start: 20060201
  3. GLUCOVANCE [Concomitant]
  4. ACTOS [Concomitant]

REACTIONS (4)
  - BLOOD GLUCOSE INCREASED [None]
  - ENERGY INCREASED [None]
  - WEIGHT DECREASED [None]
  - WEIGHT FLUCTUATION [None]
